FAERS Safety Report 9298761 (Version 4)
Quarter: 2013Q3

REPORT INFORMATION
  Report Type: Spontaneous
  Country: FR (occurrence: None)
  Receive Date: 20130515
  Receipt Date: 20130709
  Transmission Date: 20140515
  Serious: Yes (Other)
  Sender: FDA-Public Use
  Company Number: LOC-01135

PATIENT
  Age: 2 Month
  Sex: Female

DRUGS (4)
  1. LOCOID [Suspect]
     Indication: ECZEMA
     Route: 061
  2. LOCACID [Suspect]
     Dosage: TOPICAL
     Route: 061
     Dates: start: 20110131, end: 20130205
  3. OILATOM (PARAFFIN, LIQUID) [Concomitant]
  4. RIFAMYCINE (RIFAMYCIN SODIUM) [Concomitant]

REACTIONS (6)
  - Drug dispensing error [None]
  - Wrong drug administered [None]
  - Rash pruritic [None]
  - Rash erythematous [None]
  - Skin exfoliation [None]
  - Skin depigmentation [None]
